FAERS Safety Report 21045522 (Version 4)
Quarter: 2022Q4

REPORT INFORMATION
  Report Type: Spontaneous
  Country: JP (occurrence: JP)
  Receive Date: 20220706
  Receipt Date: 20221210
  Transmission Date: 20230112
  Serious: Yes (Hospitalization, Other)
  Sender: FDA-Public Use
  Company Number: JP-ONO-2022JP017662

PATIENT
  Age: 78 Year
  Sex: Male
  Weight: 53.7 kg

DRUGS (10)
  1. OPDIVO [Suspect]
     Active Substance: NIVOLUMAB
     Indication: Gastric cancer
     Dosage: 240 MG
     Route: 041
     Dates: start: 20211115, end: 20220307
  2. ANAMORELIN HYDROCHLORIDE [Suspect]
     Active Substance: ANAMORELIN HYDROCHLORIDE
     Indication: Cachexia
     Dosage: 100 MG, EVERYDAY
     Route: 048
     Dates: start: 20211011, end: 20220428
  3. VONOPRAZAN FUMARATE [Concomitant]
     Active Substance: VONOPRAZAN FUMARATE
     Dosage: 20 MG, EVERYDAY
     Route: 065
     Dates: end: 20220428
  4. FUROSEMIDE [Concomitant]
     Active Substance: FUROSEMIDE
     Dosage: 20 MG, EVERYDAY
     Route: 065
     Dates: start: 20211108, end: 20220428
  5. PACLITAXEL [Concomitant]
     Active Substance: PACLITAXEL
     Indication: Gastric cancer
     Dosage: 120 MG
     Route: 065
     Dates: end: 20211101
  6. PACLITAXEL [Concomitant]
     Active Substance: PACLITAXEL
     Dosage: 100 MG
     Route: 065
     Dates: start: 20220323, end: 20220323
  7. RAMUCIRUMAB [Concomitant]
     Active Substance: RAMUCIRUMAB
     Indication: Gastric cancer
     Dosage: 430 MG
     Route: 065
     Dates: end: 20211101
  8. RAMUCIRUMAB [Concomitant]
     Active Substance: RAMUCIRUMAB
     Dosage: 440 MG
     Route: 065
     Dates: start: 20220323, end: 20220323
  9. MOSAPRIDE CITRATE DIHYDRATE [Concomitant]
     Active Substance: MOSAPRIDE CITRATE DIHYDRATE
     Dosage: 15 MG, EVERYDAY
     Route: 065
     Dates: end: 20220207
  10. DIETARY SUPPLEMENT\PROBIOTICS [Concomitant]
     Active Substance: DIETARY SUPPLEMENT\PROBIOTICS
     Dosage: 6 DF, EVERYDAY
     Route: 048
     Dates: start: 20220111, end: 20220307

REACTIONS (5)
  - Ascites [Not Recovered/Not Resolved]
  - Hydronephrosis [Not Recovered/Not Resolved]
  - Oedema peripheral [Not Recovered/Not Resolved]
  - Acute kidney injury [Not Recovered/Not Resolved]
  - Condition aggravated [Not Recovered/Not Resolved]

NARRATIVE: CASE EVENT DATE: 20220407
